FAERS Safety Report 18856093 (Version 2)
Quarter: 2021Q1

REPORT INFORMATION
  Report Type: Spontaneous
  Country: US (occurrence: US)
  Receive Date: 20210206
  Receipt Date: 20210209
  Transmission Date: 20210420
  Serious: No
  Sender: FDA-Public Use
  Company Number: US-SA-2021SA035352

PATIENT
  Age: 63 Year
  Sex: Male

DRUGS (1)
  1. SOLIQUA 100/33 [Suspect]
     Active Substance: INSULIN GLARGINE\LIXISENATIDE
     Indication: TYPE 2 DIABETES MELLITUS
     Dosage: 20 UNITS UP TO 50 UNITS
     Route: 065
     Dates: start: 2020

REACTIONS (2)
  - Blood glucose abnormal [Unknown]
  - Product dose omission issue [Unknown]
